FAERS Safety Report 18456261 (Version 3)
Quarter: 2020Q4

REPORT INFORMATION
  Report Type: Spontaneous
  Country: US (occurrence: US)
  Receive Date: 20201103
  Receipt Date: 20201204
  Transmission Date: 20210114
  Serious: Yes (Other)
  Sender: FDA-Public Use
  Company Number: US-OREXO US, INC.-ORE202010-000069

PATIENT
  Sex: Male
  Weight: 68 kg

DRUGS (4)
  1. ZUBSOLV [Suspect]
     Active Substance: BUPRENORPHINE HYDROCHLORIDE\NALOXONE HYDROCHLORIDE
     Dosage: DECREASED TO ONE AND HALF TABLET ONCE A DAY
  2. ZUBSOLV [Suspect]
     Active Substance: BUPRENORPHINE HYDROCHLORIDE\NALOXONE HYDROCHLORIDE
     Dosage: TAKING HALF OF 8 MG NOW
  3. ZUBSOLV [Suspect]
     Active Substance: BUPRENORPHINE HYDROCHLORIDE\NALOXONE HYDROCHLORIDE
     Indication: DRUG DEPENDENCE
     Dosage: 2 TABLET ONCE A DAY
  4. ZUBSOLV [Suspect]
     Active Substance: BUPRENORPHINE HYDROCHLORIDE\NALOXONE HYDROCHLORIDE
     Dosage: GRADUALLY DECREASED THE DOSE FROM TWICE A DAY TO ONCE A DAY IN THE MORNING

REACTIONS (13)
  - Gastrooesophageal reflux disease [Not Recovered/Not Resolved]
  - Muscle tightness [Not Recovered/Not Resolved]
  - Asthenia [Not Recovered/Not Resolved]
  - Palpitations [Not Recovered/Not Resolved]
  - Nausea [Not Recovered/Not Resolved]
  - Decreased appetite [Not Recovered/Not Resolved]
  - Dyspnoea [Not Recovered/Not Resolved]
  - Drug withdrawal syndrome [Not Recovered/Not Resolved]
  - Weight decreased [Not Recovered/Not Resolved]
  - Back pain [Not Recovered/Not Resolved]
  - Depression [Not Recovered/Not Resolved]
  - Tunnel vision [Not Recovered/Not Resolved]
  - Wrong technique in product usage process [Unknown]
